FAERS Safety Report 13067145 (Version 1)
Quarter: 2016Q4

REPORT INFORMATION
  Report Type: Other
  Country: CA (occurrence: CA)
  Receive Date: 20161227
  Receipt Date: 20161227
  Transmission Date: 20170207
  Serious: Yes (Other)
  Sender: FDA-Public Use
  Company Number: CA-MLMSERVICE-20161220-0543725-1

PATIENT
  Age: 55 Year
  Sex: Male

DRUGS (1)
  1. OXYGEN. [Suspect]
     Active Substance: OXYGEN
     Indication: SYSTEMIC SCLERODERMA

REACTIONS (3)
  - Myopia [Unknown]
  - Off label use [Unknown]
  - Therapeutic response unexpected [Unknown]
